FAERS Safety Report 10514375 (Version 1)
Quarter: 2014Q4

REPORT INFORMATION
  Report Type: Spontaneous
  Country: CA (occurrence: CA)
  Receive Date: 20141013
  Receipt Date: 20141013
  Transmission Date: 20150528
  Serious: Yes (Death, Other)
  Sender: FDA-Public Use
  Company Number: CA-ACTAVIS-2014-22118

PATIENT
  Age: 47 Year
  Sex: Female

DRUGS (10)
  1. MORPHINE SULFATE (UNKNOWN) [Suspect]
     Active Substance: MORPHINE SULFATE
     Indication: PRODUCT USED FOR UNKNOWN INDICATION
     Dosage: UNK
     Route: 065
  2. ZOPICLONE (UNKNOWN) [Suspect]
     Active Substance: ZOPICLONE
     Indication: PRODUCT USED FOR UNKNOWN INDICATION
     Dosage: UNK
     Route: 065
  3. PAROXETINE HYDROCHLORIDE (UNKNOWN) [Suspect]
     Active Substance: PAROXETINE HYDROCHLORIDE
     Indication: PRODUCT USED FOR UNKNOWN INDICATION
     Dosage: UNK
     Route: 065
  4. DIAZEPAM (UNKNOWN) [Suspect]
     Active Substance: DIAZEPAM
     Indication: ACCIDENTAL OVERDOSE
  5. CODEINE (UNKNOWN) [Suspect]
     Active Substance: CODEINE
     Indication: PRODUCT USED FOR UNKNOWN INDICATION
     Dosage: UNK
     Route: 065
  6. DIAZEPAM (UNKNOWN) [Suspect]
     Active Substance: DIAZEPAM
     Indication: PRODUCT USED FOR UNKNOWN INDICATION
     Dosage: UNK
     Route: 065
  7. ZOPICLONE (UNKNOWN) [Suspect]
     Active Substance: ZOPICLONE
     Indication: ACCIDENTAL OVERDOSE
  8. PAROXETINE HYDROCHLORIDE (UNKNOWN) [Suspect]
     Active Substance: PAROXETINE HYDROCHLORIDE
     Indication: ACCIDENTAL OVERDOSE
  9. CODEINE (UNKNOWN) [Suspect]
     Active Substance: CODEINE
     Indication: ACCIDENTAL OVERDOSE
  10. MORPHINE SULFATE (UNKNOWN) [Suspect]
     Active Substance: MORPHINE SULFATE
     Indication: ACCIDENTAL OVERDOSE

REACTIONS (5)
  - Accidental overdose [Fatal]
  - Pneumonia aspiration [Fatal]
  - Drug withdrawal syndrome [Unknown]
  - Substance abuse [Unknown]
  - Drug dependence [Unknown]
